FAERS Safety Report 26070505 (Version 3)
Quarter: 2025Q4

REPORT INFORMATION
  Report Type: Spontaneous
  Country: None (occurrence: AE)
  Receive Date: 20251120
  Receipt Date: 20251217
  Transmission Date: 20260118
  Serious: Yes (Death)
  Sender: ALNYLAM PHARMACEUTICALS
  Company Number: AE-ALNYLAM PHARMACEUTICALS, INC.-ALN-2025-007330

PATIENT

DRUGS (1)
  1. OXLUMO [Suspect]
     Active Substance: LUMASIRAN
     Indication: Primary hyperoxaluria
     Dosage: 6 MILLIGRAM/KILOGRAM

REACTIONS (2)
  - Chronic respiratory disease [Fatal]
  - Cardiac dysfunction [Fatal]
